FAERS Safety Report 9019598 (Version 1)
Quarter: 2013Q1

REPORT INFORMATION
  Report Type: Spontaneous
  Country: US (occurrence: US)
  Receive Date: 20130118
  Receipt Date: 20130118
  Transmission Date: 20140127
  Serious: No
  Sender: FDA-Public Use
  Company Number: US-B.I. PHARMACEUTICALS,INC./RIDGEFIELD-2013-BI-00283BP

PATIENT
  Age: 65 None
  Sex: Male
  Weight: 73 kg

DRUGS (6)
  1. SPIRIVA [Suspect]
     Indication: BRONCHITIS CHRONIC
     Dosage: 18 MCG
     Route: 055
     Dates: start: 201211
  2. SPIRIVA [Suspect]
     Route: 048
     Dates: start: 20130104, end: 20130104
  3. PROSCAR [Concomitant]
  4. CRESTOR [Concomitant]
  5. SINGULAIR [Concomitant]
  6. ADVAIR [Concomitant]

REACTIONS (1)
  - Incorrect route of drug administration [Recovered/Resolved]
